FAERS Safety Report 9982100 (Version 1)
Quarter: 2014Q1

REPORT INFORMATION
  Report Type: Spontaneous
  Country: US (occurrence: US)
  Receive Date: 20140307
  Receipt Date: 20140307
  Transmission Date: 20141002
  Serious: No
  Sender: FDA-Public Use
  Company Number: US-ABBVIE-13P-163-1178497-00

PATIENT
  Age: 10 Year
  Sex: Female
  Weight: 30.42 kg

DRUGS (7)
  1. HUMIRA [Suspect]
     Indication: OSTEOMYELITIS
     Dates: start: 20131203
  2. METHOTREXATE [Concomitant]
     Indication: OSTEOMYELITIS
  3. FLOVENT [Concomitant]
     Indication: HYPERSENSITIVITY
  4. ASMANEX [Concomitant]
     Indication: HYPERSENSITIVITY
  5. SINGULAIR [Concomitant]
     Indication: HYPERSENSITIVITY
  6. NASONEX [Concomitant]
     Indication: HYPERSENSITIVITY
  7. INDOCIN [Concomitant]
     Indication: JOINT SWELLING

REACTIONS (2)
  - Injection site pain [Recovered/Resolved]
  - Injection site pain [Recovered/Resolved]
